FAERS Safety Report 5954666-5 (Version None)
Quarter: 2008Q4

REPORT INFORMATION
  Report Type: 
  Country: None (occurrence: None)
  Receive Date: 20081113
  Receipt Date: 20081104
  Transmission Date: 20090506
  Serious: Yes (Other)
  Sender: FDA-Public Use
  Company Number: 1000001604

PATIENT
  Age: 84 Year
  Sex: Male

DRUGS (3)
  1. MEMANTINE HCL [Suspect]
     Dosage: 5 MG (5 MG, 1 IN 1 D), ORAL
     Route: 048
  2. MEMANTINE HCL [Suspect]
     Dosage: 10 MG (10 MG, 1 IN 1 D), ORAL
     Route: 048
  3. RAMINYL [Concomitant]

REACTIONS (4)
  - ANOREXIA [None]
  - DEPRESSED MOOD [None]
  - HYPOTONIA [None]
  - SOMNOLENCE [None]
